FAERS Safety Report 7438931-0 (Version None)
Quarter: 2011Q2

REPORT INFORMATION
  Report Type: 
  Country: None (occurrence: None)
  Receive Date: 20110426
  Receipt Date: 20110415
  Transmission Date: 20111010
  Serious: Yes (Hospitalization)
  Sender: FDA-Public Use
  Company Number: NL-GENENTECH-317171

PATIENT
  Sex: Female

DRUGS (10)
  1. PREDNISONE [Concomitant]
     Indication: B-CELL LYMPHOMA
     Dosage: UNK UNK, Q3W
     Dates: start: 20100801
  2. DOXORUBICIN [Concomitant]
     Indication: B-CELL LYMPHOMA
     Dosage: UNK UNK, Q3W
     Dates: start: 20100801
  3. VINCRISTINE [Concomitant]
     Indication: PRODUCT USED FOR UNKNOWN INDICATION
     Dosage: UNK UNK, Q3W
     Dates: start: 20100801
  4. DOXORUBICIN [Concomitant]
     Dosage: UNK UNK, Q3W
     Dates: start: 20101201
  5. VINCRISTINE [Concomitant]
     Dosage: UNK
     Dates: start: 20101201
  6. MABTHERA [Suspect]
     Indication: B-CELL LYMPHOMA
     Dosage: UNK UNK, Q3W
     Route: 042
     Dates: start: 20100801
  7. CYCLOPHOSPHAMIDE [Concomitant]
     Indication: B-CELL LYMPHOMA
     Dosage: UNK UNK, Q3W
     Dates: start: 20100801
  8. MABTHERA [Suspect]
     Dosage: UNK UNK, Q3W
     Route: 042
     Dates: start: 20101201
  9. PREDNISONE [Concomitant]
     Dosage: UNK UNK, Q3W
     Dates: start: 20101201
  10. CYCLOPHOSPHAMIDE [Concomitant]
     Dosage: UNK UNK, Q3W
     Dates: start: 20101201

REACTIONS (2)
  - INTESTINAL ULCER [None]
  - NEUTROPENIA [None]
